FAERS Safety Report 25041054 (Version 1)
Quarter: 2025Q1

REPORT INFORMATION
  Report Type: Spontaneous
  Country: FI (occurrence: FI)
  Receive Date: 20250305
  Receipt Date: 20250305
  Transmission Date: 20250408
  Serious: Yes (Life-Threatening, Other)
  Sender: OCTAPHARMA
  Company Number: FI-OCTA-2025000182

PATIENT
  Age: 80 Year
  Sex: Male

DRUGS (1)
  1. OCTAPLAS LG [Suspect]
     Active Substance: PLASMA PROTEIN FRACTION (HUMAN)
     Indication: Procedural haemorrhage
     Route: 042
     Dates: start: 20250223, end: 20250223

REACTIONS (9)
  - Cardiac arrest [Recovered/Resolved]
  - Anaphylactic reaction [Unknown]
  - Shock [Unknown]
  - Nausea [Unknown]
  - Anxiety [Unknown]
  - Dyspnoea [Unknown]
  - Urticaria [Unknown]
  - Vomiting [Unknown]
  - Cold sweat [Unknown]

NARRATIVE: CASE EVENT DATE: 20250223
